FAERS Safety Report 5024992-5 (Version None)
Quarter: 2006Q2

REPORT INFORMATION
  Report Type: 
  Country: None (occurrence: None)
  Receive Date: 20060607
  Receipt Date: 20060530
  Transmission Date: 20061013
  Serious: Yes (Hospitalization, Disabling, Other)
  Sender: FDA-Public Use
  Company Number: 2006-05-2226

PATIENT
  Age: 59 Year
  Sex: Male
  Weight: 64 kg

DRUGS (7)
  1. PEG-INTRON [Suspect]
     Indication: HEPATITIS C
     Dosage: 100 MCG QW SUBCUTANEOUS
     Route: 058
     Dates: start: 20060107, end: 20060428
  2. REBETOL [Suspect]
     Indication: HEPATITIS C
     Dosage: 800 MG ORAL
     Route: 048
     Dates: start: 20060107, end: 20060428
  3. DOGMATYL [Concomitant]
  4. DIOVAN TABLETS ORAL [Concomitant]
  5. URSO ORAL [Concomitant]
  6. LOXONIN ORAL [Concomitant]
  7. ALESION (EPINASTINE HYDROCHLORIDE) ORAL [Concomitant]

REACTIONS (2)
  - CEREBRAL INFARCTION [None]
  - DEPRESSION [None]
